FAERS Safety Report 11220498 (Version 1)
Quarter: 2015Q2

REPORT INFORMATION
  Report Type: Report from Study
  Country: CA (occurrence: CA)
  Receive Date: 20150626
  Receipt Date: 20150626
  Transmission Date: 20150821
  Serious: Yes (Other)
  Sender: FDA-Public Use
  Company Number: CA-AMGEN-CANSL2015005464

PATIENT
  Age: 52 Year
  Sex: Female

DRUGS (16)
  1. VITAMIN B [Concomitant]
     Active Substance: VITAMIN B
     Dosage: 100 UNK, UNK
  2. SINGULAIR [Concomitant]
     Active Substance: MONTELUKAST SODIUM
     Dosage: UNK
  3. CELEBREX [Concomitant]
     Active Substance: CELECOXIB
     Dosage: 200 MG, BID
  4. HAWTHORNE [Concomitant]
     Dosage: 525 UNK, UNK
  5. ENBREL [Suspect]
     Active Substance: ETANERCEPT
     Indication: ANKYLOSING SPONDYLITIS
     Dosage: 50 MG, QWK
     Route: 065
     Dates: start: 20100409
  6. PANTOLOC                           /01263204/ [Concomitant]
     Active Substance: PANTOPRAZOLE SODIUM
     Dosage: 20 MG, QD
  7. VENTOLIN [Concomitant]
     Active Substance: ALBUTEROL SULFATE
     Indication: BRONCHITIS
     Dosage: UNK
  8. BACLOFEN. [Concomitant]
     Active Substance: BACLOFEN
     Dosage: 10 MG, TID
  9. VITAMIN D                          /00107901/ [Concomitant]
     Active Substance: ERGOCALCIFEROL
     Dosage: 5000 IU, QD
  10. SYMBICORT [Concomitant]
     Active Substance: BUDESONIDE\FORMOTEROL FUMARATE DIHYDRATE
     Dosage: UNK
  11. REACTINE                           /00884302/ [Concomitant]
     Active Substance: CETIRIZINE HYDROCHLORIDE
     Dosage: UNK
  12. PERCOCET [Concomitant]
     Active Substance: ACETAMINOPHEN\OXYCODONE HYDROCHLORIDE
     Dosage: 325 UNK, TID
  13. PRED FORTE [Concomitant]
     Active Substance: PREDNISOLONE ACETATE
     Dosage: UNK
  14. ELTROXIN [Concomitant]
     Active Substance: LEVOTHYROXINE
     Dosage: 50 MG, QD
  15. VITAMIN B12 [Concomitant]
     Active Substance: CYANOCOBALAMIN
     Dosage: UNK UNK, QD
  16. OXYCODONE HYDROCHLORIDE AND ACETAMINOPHEN [Concomitant]
     Active Substance: ACETAMINOPHEN\OXYCODONE HYDROCHLORIDE
     Dosage: UNK

REACTIONS (11)
  - Decreased immune responsiveness [Unknown]
  - Malaise [Unknown]
  - Iritis [Not Recovered/Not Resolved]
  - Asthenia [Not Recovered/Not Resolved]
  - Lactose intolerance [Unknown]
  - Fatigue [Not Recovered/Not Resolved]
  - Coeliac disease [Unknown]
  - Pneumonia [Recovered/Resolved]
  - Ankylosing spondylitis [Unknown]
  - Bronchitis chronic [Not Recovered/Not Resolved]
  - Visual impairment [Unknown]

NARRATIVE: CASE EVENT DATE: 201407
